FAERS Safety Report 16372143 (Version 1)
Quarter: 2019Q2

REPORT INFORMATION
  Report Type: Spontaneous
  Country: US (occurrence: US)
  Receive Date: 20190530
  Receipt Date: 20190530
  Transmission Date: 20190711
  Serious: No
  Sender: FDA-Public Use
  Company Number: US-CELGENEUS-USA-20190509239

PATIENT
  Sex: Female
  Weight: 54.03 kg

DRUGS (4)
  1. THALOMID [Suspect]
     Active Substance: THALIDOMIDE
     Indication: PLASMA CELL MYELOMA
     Dosage: 200 MILLIGRAM
     Route: 048
     Dates: start: 200602
  2. THALOMID [Suspect]
     Active Substance: THALIDOMIDE
     Dosage: 150 MG-100 MG
     Route: 048
     Dates: start: 200603
  3. THALOMID [Suspect]
     Active Substance: THALIDOMIDE
     Dosage: 50 MILLIGRAM
     Route: 048
     Dates: start: 200708
  4. THALOMID [Suspect]
     Active Substance: THALIDOMIDE
     Dosage: 50 MILLIGRAM
     Route: 048
     Dates: start: 200801

REACTIONS (2)
  - Neuropathy peripheral [Recovered/Resolved]
  - Feeling abnormal [Recovered/Resolved]
